FAERS Safety Report 8618079 (Version 2)
Quarter: 2012Q4

REPORT INFORMATION
  Report Type: 
  Country: US (occurrence: US)
  Receive Date: 20120615
  Receipt Date: 20121205
  Transmission Date: 20130627
  Serious: Yes (Other)
  Sender: FDA-Public Use
  Company Number: US-ROCHE-1006964

PATIENT
  Age: 83 Year
  Sex: Male
  Weight: 72.46 kg

DRUGS (15)
  1. ZELBORAF [Suspect]
     Indication: METASTATIC MALIGNANT MELANOMA
     Route: 048
     Dates: start: 20110916
  2. ZELBORAF [Suspect]
     Route: 065
     Dates: start: 20111011
  3. ZELBORAF [Suspect]
     Route: 065
     Dates: start: 20110812
  4. ZELBORAF [Suspect]
     Dosage: during first cycle
     Route: 065
  5. ZELBORAF [Suspect]
     Dosage: during second cycle
     Route: 065
  6. SIMVASTATIN [Concomitant]
  7. OMEPRAZOLE [Concomitant]
  8. METFORMIN [Concomitant]
  9. GLIPIZIDE [Concomitant]
  10. ACTOS [Concomitant]
  11. HYTRIN [Concomitant]
  12. BETAPACE [Concomitant]
  13. WARFARIN [Concomitant]
  14. ZOFRAN [Concomitant]
  15. VITAMIN D [Concomitant]

REACTIONS (18)
  - Atrial fibrillation [Unknown]
  - Haemoptysis [Unknown]
  - Rash [Unknown]
  - Visual impairment [Recovering/Resolving]
  - Diarrhoea [Recovering/Resolving]
  - Fatigue [Recovering/Resolving]
  - Mass [Not Recovered/Not Resolved]
  - Stomatitis [Recovering/Resolving]
  - Alopecia [Not Recovered/Not Resolved]
  - Eye irritation [Recovering/Resolving]
  - Decreased appetite [Not Recovered/Not Resolved]
  - Dizziness [Unknown]
  - Hypoaesthesia [Unknown]
  - Headache [Not Recovered/Not Resolved]
  - Oedema peripheral [Unknown]
  - Arthralgia [Unknown]
  - Metastases to lung [Unknown]
  - Haemoptysis [Unknown]
